FAERS Safety Report 8430877-4 (Version None)
Quarter: 2012Q2

REPORT INFORMATION
  Report Type: 
  Country: None (occurrence: None)
  Receive Date: 20120323
  Receipt Date: 20110829
  Transmission Date: 20120825
  Serious: Yes (Hospitalization)
  Sender: FDA-Public Use
  Company Number: 163-21880-11083453

PATIENT
  Age: 71 Year
  Sex: Male

DRUGS (17)
  1. CYANOCOBALAM (CYANOCOBALAMIN) (UNKNOWN) [Concomitant]
  2. VITAMIN D (ERGOCALCIFEROL) (UNKNOWN) [Concomitant]
  3. REVLIMID [Suspect]
     Indication: MULTIPLE MYELOMA
     Dosage: 25 MG, QD X 21 DAYS, PO; 5 MG, X 21 DAYS, PO
     Route: 048
     Dates: start: 20110801
  4. REVLIMID [Suspect]
     Indication: MULTIPLE MYELOMA
     Dosage: 25 MG, QD X 21 DAYS, PO; 5 MG, X 21 DAYS, PO
     Route: 048
     Dates: start: 20110803, end: 20110801
  5. AMBIEN [Concomitant]
  6. LISINOPRIL [Concomitant]
  7. ACYCLOVIR (ACICLOVIR) (UNKNOWN) [Concomitant]
  8. COREG (CARVEDILOL) (UNKNOWN) [Concomitant]
  9. COUMADIN [Concomitant]
  10. DOXIL [Concomitant]
  11. ZOMETA [Concomitant]
  12. OMEGA (OMEGA) (UNKNOWN) [Concomitant]
  13. FENTANYL [Concomitant]
  14. BACTRIM [Concomitant]
  15. COLACE (DOCUSATE SODIUM) (UNKNOWN) [Concomitant]
  16. DECADRON [Concomitant]
  17. PROCRIT [Concomitant]

REACTIONS (3)
  - RENAL IMPAIRMENT [None]
  - GOUT [None]
  - THROMBOSIS [None]
